FAERS Safety Report 5152718-3 (Version None)
Quarter: 2006Q4

REPORT INFORMATION
  Report Type: 
  Country: None (occurrence: None)
  Receive Date: 20061116
  Receipt Date: 20060131
  Transmission Date: 20070319
  Serious: Yes (Hospitalization)
  Sender: FDA-Public Use
  Company Number: DK-ABBOTT-06P-044-0324150-00

PATIENT
  Sex: Female

DRUGS (1)
  1. KLACID UNO [Suspect]
     Indication: PNEUMONIA
     Route: 048
     Dates: start: 20060106, end: 20060112

REACTIONS (1)
  - ABORTION MISSED [None]
